FAERS Safety Report 24976212 (Version 2)
Quarter: 2025Q3

REPORT INFORMATION
  Report Type: Spontaneous
  Country: US (occurrence: None)
  Receive Date: 20250217
  Receipt Date: 20250810
  Transmission Date: 20251020
  Serious: No
  Sender: ALEXION PHARMACEUTICALS
  Company Number: US-AstraZeneca-2004UW22590

PATIENT
  Age: 53 Year
  Sex: Male
  Weight: 83.9 kg

DRUGS (2)
  1. NEXIUM [Suspect]
     Active Substance: ESOMEPRAZOLE MAGNESIUM
     Indication: Gastrooesophageal reflux disease
  2. NEXIUM [Suspect]
     Active Substance: ESOMEPRAZOLE MAGNESIUM
     Indication: Barrett^s oesophagus

REACTIONS (4)
  - Tinnitus [Unknown]
  - Headache [Unknown]
  - Hyperhidrosis [Unknown]
  - Hot flush [Unknown]
